FAERS Safety Report 9988054 (Version 3)
Quarter: 2014Q2

REPORT INFORMATION
  Report Type: Spontaneous
  Country: IT (occurrence: IT)
  Receive Date: 20140308
  Receipt Date: 20140408
  Transmission Date: 20141212
  Serious: Yes (Other)
  Sender: FDA-Public Use
  Company Number: IT-ROCHE-1358207

PATIENT
  Age: 62 Year
  Sex: Female

DRUGS (3)
  1. HERCEPTIN [Suspect]
     Indication: BREAST CANCER
     Route: 042
     Dates: start: 20140217, end: 20140217
  2. NAVELBINE [Suspect]
     Indication: BREAST CANCER
     Route: 042
     Dates: start: 20140217, end: 20140217
  3. TRIMETON (ITALY) [Concomitant]
     Indication: PREMEDICATION
     Route: 042
     Dates: start: 20140217, end: 20140217

REACTIONS (2)
  - Abdominal pain [Recovered/Resolved]
  - Febrile convulsion [Unknown]
